FAERS Safety Report 8298360 (Version 2)
Quarter: 2012Q4

REPORT INFORMATION
  Report Type: 
  Country: US (occurrence: US)
  Receive Date: 20111219
  Receipt Date: 20121026
  Transmission Date: 20130627
  Serious: No
  Sender: FDA-Public Use
  Company Number: US-ASTRAZENECA-2011SE03665

PATIENT
  Age: 59 Year
  Sex: Female
  Weight: 104.3 kg

DRUGS (9)
  1. CRESTOR [Suspect]
     Route: 048
     Dates: start: 20111018
  2. PRILOSEC [Suspect]
     Route: 048
  3. FERROUS SULFATE [Concomitant]
     Dates: start: 20111019
  4. MULTIVITAMIN/MINERAL SUPPLEMENT [Concomitant]
     Dates: start: 20111018
  5. LISINOPRIL [Concomitant]
     Route: 048
     Dates: start: 20111018
  6. CIMETIDINE [Concomitant]
     Route: 048
     Dates: start: 20111018
  7. SUCRALFATE [Concomitant]
     Route: 048
     Dates: start: 20111018
  8. SUCRALFATE [Concomitant]
     Route: 048
     Dates: start: 20111018
  9. TRAMADOL [Concomitant]
     Dosage: ONE TABLET EVERY SIX TO EIGHT HOURS AS NEEDED
     Dates: start: 20111018

REACTIONS (9)
  - Iron deficiency anaemia [Unknown]
  - Hypercholesterolaemia [Unknown]
  - Hiatus hernia [Unknown]
  - Type V hyperlipidaemia [Unknown]
  - Essential hypertension [Unknown]
  - Hypoglycaemia [Unknown]
  - Blood cholesterol increased [Unknown]
  - Drug hypersensitivity [Unknown]
  - Drug dose omission [Unknown]
